FAERS Safety Report 4897141-1 (Version None)
Quarter: 2006Q1

REPORT INFORMATION
  Report Type: 
  Country: None (occurrence: None)
  Receive Date: 20060127
  Receipt Date: 20060116
  Transmission Date: 20060701
  Serious: Yes (Hospitalization)
  Sender: FDA-Public Use
  Company Number: HQWYE171804JAN06

PATIENT
  Age: 25 Year
  Sex: Female

DRUGS (10)
  1. RAPAMUNE [Suspect]
     Indication: PROPHYLAXIS AGAINST TRANSPLANT REJECTION
     Dosage: 8 MG 1X PER 1 DAY ORAL; 6 MG 1X PER 1 DAY ORAL
     Route: 048
     Dates: start: 20051123, end: 20060106
  2. RAPAMUNE [Suspect]
     Indication: PROPHYLAXIS AGAINST TRANSPLANT REJECTION
     Dosage: 8 MG 1X PER 1 DAY ORAL; 6 MG 1X PER 1 DAY ORAL
     Route: 048
     Dates: start: 20060110
  3. RAPAMUNE [Suspect]
  4. PREDNISONE [Concomitant]
  5. MYCOPHENOLATE MOFETIL (MYCOPHENOLATE MOFETIL) [Concomitant]
  6. BACTRIM [Concomitant]
  7. LEUCOVORIN CALCIUM [Concomitant]
  8. ATENOLOL [Concomitant]
  9. MEPREDNISONE (MEPREDNISONE) [Concomitant]
  10. OMEPRAZOLE [Concomitant]

REACTIONS (6)
  - BLOOD CREATININE INCREASED [None]
  - BLOOD UREA INCREASED [None]
  - COMPLICATIONS OF TRANSPLANTED KIDNEY [None]
  - LYMPHOCELE [None]
  - PYREXIA [None]
  - URETERAL DISORDER [None]
